FAERS Safety Report 7765309-2 (Version None)
Quarter: 2011Q3

REPORT INFORMATION
  Report Type: 
  Country: None (occurrence: None)
  Receive Date: 20110921
  Receipt Date: 20110916
  Transmission Date: 20111222
  Serious: No
  Sender: FDA-Public Use
  Company Number: US-BAYER-2011-088194

PATIENT
  Age: 24 Year
  Sex: Female

DRUGS (1)
  1. MIRENA [Suspect]
     Indication: CONTRACEPTION
     Dosage: 20 MCG/24HR, CONT
     Route: 015
     Dates: start: 20110326, end: 20110916

REACTIONS (6)
  - ABDOMINAL DISCOMFORT [None]
  - PELVIC DISCOMFORT [None]
  - MENSTRUAL DISORDER [None]
  - MENORRHAGIA [None]
  - BREAST PAIN [None]
  - MUSCLE SPASMS [None]
